FAERS Safety Report 16345426 (Version 4)
Quarter: 2025Q1

REPORT INFORMATION
  Report Type: Report from Study
  Country: CH (occurrence: CA)
  Receive Date: 20190523
  Receipt Date: 20250114
  Transmission Date: 20250408
  Serious: Yes (Other)
  Sender: CSL BEHRING
  Company Number: CH-BEH-2019102565

PATIENT
  Sex: Male

DRUGS (1)
  1. HUMAN IMMUNOGLOBULIN G [Suspect]
     Active Substance: HUMAN IMMUNOGLOBULIN G
     Indication: Selective IgG subclass deficiency
     Route: 042

REACTIONS (3)
  - Haemolysis [Unknown]
  - Coombs direct test positive [Unknown]
  - Haemolysis [Unknown]
